FAERS Safety Report 9815947 (Version 3)
Quarter: 2014Q1

REPORT INFORMATION
  Report Type: Report from Study
  Country: CA (occurrence: CA)
  Receive Date: 20140114
  Receipt Date: 20140219
  Transmission Date: 20141002
  Serious: Yes (Hospitalization)
  Sender: FDA-Public Use
  Company Number: PHHY2014CA003304

PATIENT
  Sex: Male

DRUGS (2)
  1. CLOZARIL (CLOZAPINE) [Suspect]
     Dates: start: 20131213, end: 20131224
  2. CLOZARIL (CLOZAPINE) [Suspect]
     Dates: start: 20140119, end: 20140123

REACTIONS (3)
  - Myocarditis [Unknown]
  - Pyrexia [Unknown]
  - Confusional state [Unknown]
